FAERS Safety Report 23420794 (Version 1)
Quarter: 2024Q1

REPORT INFORMATION
  Report Type: Report from Study
  Country: US (occurrence: US)
  Receive Date: 20240119
  Receipt Date: 20240119
  Transmission Date: 20240410
  Serious: Yes (Hospitalization, Other)
  Sender: FDA-Public Use
  Company Number: US-ACADIA PHARMACEUTICALS INC.-ACA-2024-PIM-000085

PATIENT
  Age: 80 Year
  Sex: Female

DRUGS (21)
  1. NUPLAZID [Suspect]
     Active Substance: PIMAVANSERIN TARTRATE
     Indication: Parkinson^s disease
     Dosage: 34 MILLIGRAM, QD
     Route: 048
     Dates: start: 20230907
  2. NUPLAZID [Suspect]
     Active Substance: PIMAVANSERIN TARTRATE
     Indication: Dementia
  3. NUPLAZID [Suspect]
     Active Substance: PIMAVANSERIN TARTRATE
     Indication: Schizophrenia
  4. LEVOTHYROXINE [Concomitant]
     Active Substance: LEVOTHYROXINE\LEVOTHYROXINE SODIUM
  5. ATORVASTATIN [Concomitant]
     Active Substance: ATORVASTATIN
  6. FAMOTIDINE [Concomitant]
     Active Substance: FAMOTIDINE
  7. RIVASTIGMINE [Concomitant]
     Active Substance: RIVASTIGMINE
  8. CALCIUM [Concomitant]
     Active Substance: CALCIUM
  9. FOSAMAX [Concomitant]
     Active Substance: ALENDRONATE SODIUM
  10. BIOTIN [Concomitant]
     Active Substance: BIOTIN
  11. ZYRTEC [Concomitant]
     Active Substance: CETIRIZINE HYDROCHLORIDE
  12. DOCUSATE [Concomitant]
     Active Substance: DOCUSATE
  13. SENNA [Concomitant]
     Active Substance: SENNA LEAF\SENNOSIDES\SENNOSIDES A AND B
  14. FIBRE [Concomitant]
  15. PROBIOTICS NOS [Concomitant]
     Active Substance: PROBIOTICS NOS
  16. QUETIAPINE [Concomitant]
     Active Substance: QUETIAPINE
  17. DOXEPIN [Concomitant]
     Active Substance: DOXEPIN
  18. ALBUTEROL [Concomitant]
     Active Substance: ALBUTEROL
  19. CRANBERRY [Concomitant]
     Active Substance: CRANBERRY
  20. FUROSEMIDE [Concomitant]
     Active Substance: FUROSEMIDE
  21. ATIVAN [Concomitant]
     Active Substance: LORAZEPAM

REACTIONS (5)
  - Cardiac failure congestive [Recovered/Resolved]
  - Mitral valve incompetence [Recovered/Resolved]
  - Aortic valve incompetence [Recovered/Resolved]
  - Oedema [Recovered/Resolved]
  - Systolic dysfunction [Recovered/Resolved]

NARRATIVE: CASE EVENT DATE: 20231228
